FAERS Safety Report 5009662-1 (Version None)
Quarter: 2006Q2

REPORT INFORMATION
  Report Type: 
  Country: None (occurrence: None)
  Receive Date: 20060524
  Receipt Date: 20060515
  Transmission Date: 20061013
  Serious: Yes (Hospitalization, Other)
  Sender: FDA-Public Use
  Company Number: NL-GLAXOSMITHKLINE-B0424696A

PATIENT

DRUGS (1)
  1. SALBUTAMOL SULPHATE [Suspect]
     Route: 055

REACTIONS (2)
  - DYSPNOEA EXACERBATED [None]
  - FOREIGN BODY TRAUMA [None]
